FAERS Safety Report 14561780 (Version 2)
Quarter: 2018Q2

REPORT INFORMATION
  Report Type: Spontaneous
  Country: US (occurrence: US)
  Receive Date: 20180222
  Receipt Date: 20180604
  Transmission Date: 20180711
  Serious: No
  Sender: FDA-Public Use
  Company Number: US-PFIZER INC-2018071937

PATIENT
  Age: 15 Year
  Sex: Male
  Weight: 53.9 kg

DRUGS (1)
  1. GENOTROPIN MQ [Suspect]
     Active Substance: SOMATROPIN
     Dosage: 2 MG, DAILY
     Dates: start: 20180216, end: 20180530

REACTIONS (2)
  - Drug effect incomplete [Unknown]
  - Contraindicated product administered [Unknown]
